FAERS Safety Report 10216050 (Version 2)
Quarter: 2014Q1

REPORT INFORMATION
  Report Type: Report from Study
  Country: US (occurrence: None)
  Receive Date: 20111229
  Receipt Date: 20140115
  Transmission Date: 20141002
  Serious: Yes (Hospitalization)
  Sender: FDA-Public Use
  Company Number: DAV-AE-MTX-11-068

PATIENT
  Age: 43 Year
  Sex: Female
  Weight: 74.1 kg

DRUGS (8)
  1. METHOTREXATE (METHOTREXATE) [Suspect]
     Indication: RHEUMATOID ARTHRITIS
     Route: 048
     Dates: start: 20110527, end: 20110916
  2. HUMIRA (ADALIMUMAB) OPEN LABEL [Suspect]
     Indication: RHEUMATOID ARTHRITIS
     Route: 058
     Dates: start: 20110527, end: 20110916
  3. NEXIUM ESOMEPRAZOLE SODIUM [Concomitant]
  4. PLAQUENIL HYDROXYCHLOROQUINE PHOSPHATE [Concomitant]
  5. DIOVAN HCT CO-DIOVAN (HYDROCHLOROTHIAZIDE, VALSARTAN) [Concomitant]
  6. METOPROLOL [Concomitant]
  7. ASPIRIN ACETYLSALICYLIC ACID [Concomitant]
  8. FOLIC ACID [Concomitant]

REACTIONS (2)
  - Asthenia [None]
  - Anaemia [None]
